FAERS Safety Report 23456522 (Version 1)
Quarter: 2024Q1

REPORT INFORMATION
  Report Type: Spontaneous
  Country: US (occurrence: None)
  Receive Date: 20240129
  Receipt Date: 20240129
  Transmission Date: 20240410
  Serious: Yes (Death)
  Sender: FDA-Public Use
  Company Number: None

PATIENT
  Age: 75 Year
  Sex: Female

DRUGS (8)
  1. MYCOPHENOLIC ACID [Suspect]
     Active Substance: MYCOPHENOLIC ACID
     Indication: Renal transplant
     Dosage: FREQUENCY : TWICE A DAY;?
     Route: 048
     Dates: start: 20211220, end: 20230816
  2. CINACALCET [Suspect]
     Active Substance: CINACALCET
     Dates: start: 20220901, end: 20230816
  3. METFORMIN [Concomitant]
  4. PREDNISONE [Concomitant]
  5. TACROLIMUS [Concomitant]
  6. ATORVASTATIN [Concomitant]
  7. ELIQUIS [Concomitant]
  8. MAG-OXIDE [Concomitant]

REACTIONS (1)
  - Death [None]

NARRATIVE: CASE EVENT DATE: 20240129
